FAERS Safety Report 8258681-0 (Version None)
Quarter: 2012Q1

REPORT INFORMATION
  Report Type: 
  Country: None (occurrence: None)
  Receive Date: 20120322
  Receipt Date: 20120201
  Transmission Date: 20120608
  Serious: Yes (Death)
  Sender: FDA-Public Use
  Company Number: UTC-015132

PATIENT
  Age: 57 Year
  Sex: Female

DRUGS (3)
  1. REVATIO [Suspect]
  2. DIURETICS (DIURETICS) [Concomitant]
  3. TYVASO [Suspect]
     Dosage: 54 MCG, INHALATION
     Route: 055

REACTIONS (1)
  - PULMONARY OEDEMA [None]
